FAERS Safety Report 25155252 (Version 1)
Quarter: 2025Q2

REPORT INFORMATION
  Report Type: Spontaneous
  Country: US (occurrence: None)
  Receive Date: 20250402
  Receipt Date: 20250402
  Transmission Date: 20250716
  Serious: Yes (Hospitalization)
  Sender: FDA-CTU
  Company Number: None

PATIENT
  Age: 24 Year
  Sex: Female
  Weight: 127.9 kg

DRUGS (1)
  1. SUCCINYLCHOLINE CHLORIDE [Suspect]
     Active Substance: SUCCINYLCHOLINE CHLORIDE
     Indication: Caesarean section
     Route: 042
     Dates: start: 20241205

REACTIONS (3)
  - Respiratory arrest [None]
  - Pseudocholinesterase deficiency [None]
  - Product quality issue [None]

NARRATIVE: CASE EVENT DATE: 20241205
